FAERS Safety Report 23546363 (Version 2)
Quarter: 2024Q1

REPORT INFORMATION
  Report Type: Spontaneous
  Country: PT (occurrence: PT)
  Receive Date: 20240220
  Receipt Date: 20240226
  Transmission Date: 20240410
  Serious: Yes (Life-Threatening, Other)
  Sender: FDA-Public Use
  Company Number: PT-VIIV HEALTHCARE LIMITED-PT2018172072

PATIENT
  Age: 35 Year
  Sex: Male

DRUGS (42)
  1. ALCOHOL [Suspect]
     Active Substance: ALCOHOL
     Indication: Product used for unknown indication
     Dosage: UNK
     Route: 065
  2. EMTRICITABINE AND TENOFOVIR DISOPROXIL FUMARATE [Suspect]
     Active Substance: EMTRICITABINE\TENOFOVIR DISOPROXIL FUMARATE
     Indication: Hepatitis C
     Dosage: 1 ML OF TRIAMCINOLONE 40 MG INJECTED
     Route: 065
  3. EMTRICITABINE AND TENOFOVIR DISOPROXIL FUMARATE [Suspect]
     Active Substance: EMTRICITABINE\TENOFOVIR DISOPROXIL FUMARATE
     Indication: HIV infection
     Dosage: UNK
     Route: 065
  4. EMTRICITABINE AND TENOFOVIR DISOPROXIL FUMARATE [Suspect]
     Active Substance: EMTRICITABINE\TENOFOVIR DISOPROXIL FUMARATE
     Indication: Chronic hepatitis C
  5. LOPINAVIR\RITONAVIR [Suspect]
     Active Substance: LOPINAVIR\RITONAVIR
     Indication: Hepatitis C
     Dosage: 1 ML OF TRIAMCINOLONE 40 MG INJECTED
     Route: 065
  6. LOPINAVIR\RITONAVIR [Suspect]
     Active Substance: LOPINAVIR\RITONAVIR
     Indication: HIV infection
     Dosage: UNK
     Route: 048
  7. LOPINAVIR\RITONAVIR [Suspect]
     Active Substance: LOPINAVIR\RITONAVIR
     Indication: Chronic hepatitis C
     Dosage: UNK
     Route: 065
  8. LOPINAVIR\RITONAVIR [Suspect]
     Active Substance: LOPINAVIR\RITONAVIR
     Indication: HIV infection CDC category C
     Dosage: UNK
     Route: 065
  9. LAMIVUDINE [Suspect]
     Active Substance: LAMIVUDINE
     Indication: Chronic hepatitis C
     Dosage: 1 ML OF TRIAMCINOLONE 40 MG INJECTED
     Route: 065
  10. LAMIVUDINE [Suspect]
     Active Substance: LAMIVUDINE
     Indication: HIV infection
     Dosage: UNK
     Route: 048
  11. LAMIVUDINE [Suspect]
     Active Substance: LAMIVUDINE
     Indication: Hepatitis C
     Dosage: UNK
     Route: 065
  12. LAMIVUDINE [Suspect]
     Active Substance: LAMIVUDINE
     Indication: HIV infection CDC category C
  13. MIRTAZAPINE [Suspect]
     Active Substance: MIRTAZAPINE
     Indication: Depression
     Dosage: 1 ML OF TRIAMCINOLONE 40 MG INJECTED
     Route: 065
  14. MIRTAZAPINE [Suspect]
     Active Substance: MIRTAZAPINE
     Indication: HIV infection
     Dosage: UNK
     Route: 048
  15. MIRTAZAPINE [Suspect]
     Active Substance: MIRTAZAPINE
     Indication: Hepatitis C
     Dosage: UNK
     Route: 065
  16. MIRTAZAPINE [Suspect]
     Active Substance: MIRTAZAPINE
     Indication: Chronic hepatitis C
  17. METHADONE [Suspect]
     Active Substance: METHADONE HYDROCHLORIDE
     Indication: Hepatitis C
     Dosage: 1 ML OF TRIAMCINOLONE 40 MG INJECTED
     Route: 065
  18. METHADONE [Suspect]
     Active Substance: METHADONE HYDROCHLORIDE
     Indication: Chronic hepatitis C
     Dosage: UNK
     Route: 065
  19. METHADONE [Suspect]
     Active Substance: METHADONE HYDROCHLORIDE
     Indication: HIV infection
     Dosage: UNK
     Route: 065
  20. OLANZAPINE [Suspect]
     Active Substance: OLANZAPINE
     Indication: Hepatitis C
     Dosage: 1 ML OF TRIAMCINOLONE 40 MG INJECTED
     Route: 065
  21. OLANZAPINE [Suspect]
     Active Substance: OLANZAPINE
     Indication: HIV infection
     Dosage: UNK
     Route: 048
  22. OLANZAPINE [Suspect]
     Active Substance: OLANZAPINE
     Indication: Chronic hepatitis C
     Dosage: UNK
     Route: 065
  23. QUETIAPINE [Suspect]
     Active Substance: QUETIAPINE
     Indication: Hepatitis C
     Dosage: 1 ML OF TRIAMCINOLONE 40 MG INJECTED
     Route: 065
  24. QUETIAPINE [Suspect]
     Active Substance: QUETIAPINE
     Indication: HIV infection
     Dosage: UNK
     Route: 048
  25. QUETIAPINE [Suspect]
     Active Substance: QUETIAPINE
     Indication: Chronic hepatitis C
     Dosage: UNK
     Route: 065
  26. SERTRALINE [Suspect]
     Active Substance: SERTRALINE HYDROCHLORIDE
     Indication: Hepatitis C
     Dosage: 1 ML OF TRIAMCINOLONE 40 MG INJECTED
     Route: 065
  27. SERTRALINE [Suspect]
     Active Substance: SERTRALINE HYDROCHLORIDE
     Indication: HIV infection
     Dosage: UNK
     Route: 048
  28. SERTRALINE [Suspect]
     Active Substance: SERTRALINE HYDROCHLORIDE
     Indication: Chronic hepatitis C
     Dosage: UNK
     Route: 065
  29. TENOFOVIR [Suspect]
     Active Substance: TENOFOVIR
     Indication: HIV infection CDC category C
     Dosage: UNK
     Route: 048
  30. TIAPRIDE [Suspect]
     Active Substance: TIAPRIDE
     Indication: Hepatitis C
     Dosage: 1 ML OF TRIAMCINOLONE 40 MG INJECTED
     Route: 065
  31. TIAPRIDE [Suspect]
     Active Substance: TIAPRIDE
     Indication: HIV infection
     Dosage: UNK
     Route: 048
  32. TIAPRIDE [Suspect]
     Active Substance: TIAPRIDE
     Indication: Chronic hepatitis C
     Dosage: UNK
     Route: 065
  33. TRAZODONE [Suspect]
     Active Substance: TRAZODONE HYDROCHLORIDE
     Indication: HIV infection
     Dosage: 1 ML OF TRIAMCINOLONE 40 MG INJECTED
     Route: 065
  34. TRAZODONE [Suspect]
     Active Substance: TRAZODONE HYDROCHLORIDE
     Indication: Chronic hepatitis C
     Dosage: UNK
     Route: 048
  35. TRAZODONE [Suspect]
     Active Substance: TRAZODONE HYDROCHLORIDE
     Indication: Hepatitis C
     Dosage: UNK
     Route: 048
  36. VENLAFAXINE [Suspect]
     Active Substance: VENLAFAXINE HYDROCHLORIDE
     Indication: Hepatitis C
     Dosage: 1 ML OF TRIAMCINOLONE 40 MG INJECTED
     Route: 065
  37. VENLAFAXINE [Suspect]
     Active Substance: VENLAFAXINE HYDROCHLORIDE
     Indication: HIV infection
     Dosage: UNK
     Route: 048
  38. VENLAFAXINE [Suspect]
     Active Substance: VENLAFAXINE HYDROCHLORIDE
     Indication: Chronic hepatitis C
     Dosage: UNK
     Route: 065
  39. ZIDOVUDINE [Suspect]
     Active Substance: ZIDOVUDINE
     Indication: Hepatitis C
     Dosage: 1 ML OF TRIAMCINOLONE 40 MG INJECTED
     Route: 065
  40. ZIDOVUDINE [Suspect]
     Active Substance: ZIDOVUDINE
     Indication: HIV infection
     Dosage: UNK
     Route: 048
  41. ZIDOVUDINE [Suspect]
     Active Substance: ZIDOVUDINE
     Indication: Chronic hepatitis C
     Dosage: UNK
     Route: 065
  42. ZIDOVUDINE [Suspect]
     Active Substance: ZIDOVUDINE
     Indication: HIV infection CDC category C

REACTIONS (3)
  - Hepatic fibrosis [Unknown]
  - Drug-induced liver injury [Recovered/Resolved]
  - Overdose [Recovered/Resolved]
